FAERS Safety Report 7859722-2 (Version None)
Quarter: 2011Q4

REPORT INFORMATION
  Report Type: 
  Country: None (occurrence: None)
  Receive Date: 20111027
  Receipt Date: 20111020
  Transmission Date: 20120403
  Serious: Yes (Other)
  Sender: FDA-Public Use
  Company Number: US-SANOFI-AVENTIS-2011SA070028

PATIENT
  Age: 75 Year
  Sex: Female

DRUGS (2)
  1. ALLEGRA [Suspect]
     Route: 048
  2. FEXOFENADINE HCL [Suspect]
     Route: 048
     Dates: start: 20111001, end: 20111001

REACTIONS (3)
  - SLUGGISHNESS [None]
  - CARDIAC OPERATION [None]
  - BREAST CANCER [None]
